FAERS Safety Report 8357925-4 (Version None)
Quarter: 2012Q2

REPORT INFORMATION
  Report Type: 
  Country: None (occurrence: None)
  Receive Date: 20120514
  Receipt Date: 20120503
  Transmission Date: 20120825
  Serious: Yes (Other)
  Sender: FDA-Public Use
  Company Number: BR-JNJFOC-20120506455

PATIENT
  Sex: Female
  Weight: 56 kg

DRUGS (4)
  1. ANTIALLERGIC DRUGS [Concomitant]
     Indication: PREMEDICATION
     Route: 065
     Dates: start: 20090101, end: 20110101
  2. ANTIALLERGIC DRUGS [Concomitant]
     Indication: PROPHYLAXIS
     Route: 065
     Dates: start: 20090101, end: 20110101
  3. REMICADE [Suspect]
     Route: 042
     Dates: start: 20110101, end: 20110101
  4. REMICADE [Suspect]
     Indication: CROHN'S DISEASE
     Route: 042
     Dates: start: 20090101

REACTIONS (6)
  - NEPHROLITHIASIS [None]
  - ERYTHEMA [None]
  - THINKING ABNORMAL [None]
  - ASPHYXIA [None]
  - DYSPNOEA [None]
  - INFUSION RELATED REACTION [None]
